FAERS Safety Report 18283608 (Version 2)
Quarter: 2020Q3

REPORT INFORMATION
  Report Type: Spontaneous
  Country: US (occurrence: US)
  Receive Date: 20200918
  Receipt Date: 20200918
  Transmission Date: 20201103
  Serious: No
  Sender: FDA-Public Use
  Company Number: US-AMERICAN REGENT INC-2020000019

PATIENT
  Sex: Male

DRUGS (2)
  1. ACETYLCYSTEINE SOLUTION, USP (7604?25) [Suspect]
     Active Substance: ACETYLCYSTEINE
     Indication: BRONCHOMALACIA
     Route: 065
  2. ACETYLCYSTEINE SOLUTION, USP (7604?25) [Suspect]
     Active Substance: ACETYLCYSTEINE
     Dosage: 4 MILLILITER EVERY 2?3 HOURS DAILY

REACTIONS (4)
  - Mucosal disorder [Not Recovered/Not Resolved]
  - Drug ineffective [Unknown]
  - Product odour abnormal [Unknown]
  - Wheezing [Not Recovered/Not Resolved]
